FAERS Safety Report 13702250 (Version 1)
Quarter: 2017Q2

REPORT INFORMATION
  Report Type: Report from Study
  Country: None (occurrence: US)
  Receive Date: 20170629
  Receipt Date: 20170629
  Transmission Date: 20170830
  Serious: No
  Sender: FDA-Public Use
  Company Number: US-IPSEN BIOPHARMACEUTICALS, INC.-2014-5079

PATIENT
  Age: 2 Year
  Sex: Male
  Weight: 7.7 kg

DRUGS (3)
  1. INCRELEX [Suspect]
     Active Substance: MECASERMIN
     Indication: PRIMARY INSULIN LIKE GROWTH FACTOR-1 DEFICIENCY
     Route: 058
     Dates: start: 20140831, end: 201412
  2. INCRELEX [Suspect]
     Active Substance: MECASERMIN
     Indication: GROWTH FAILURE
  3. INCRELEX [Suspect]
     Active Substance: MECASERMIN
     Indication: BODY HEIGHT BELOW NORMAL

REACTIONS (11)
  - Drug dose omission [Unknown]
  - Pyrexia [None]
  - Eye movement disorder [None]
  - Malaise [Recovering/Resolving]
  - Fatigue [None]
  - Nasal congestion [Not Recovered/Not Resolved]
  - Cough [Not Recovered/Not Resolved]
  - Rhinorrhoea [Not Recovered/Not Resolved]
  - Crying [None]
  - Blood glucose decreased [None]
  - Vomiting [None]

NARRATIVE: CASE EVENT DATE: 2014
